FAERS Safety Report 8885373 (Version 1)
Quarter: 2012Q4

REPORT INFORMATION
  Report Type: 
  Country: US (occurrence: US)
  Receive Date: 20121101
  Receipt Date: 20121101
  Transmission Date: 20130627
  Serious: No
  Sender: FDA-Public Use
  Company Number: US-B.I. PHARMACEUTICALS,INC./RIDGEFIELD-2012-BP-26709BP

PATIENT
  Sex: Male

DRUGS (18)
  1. SPIRIVA [Suspect]
     Indication: CHRONIC OBSTRUCTIVE PULMONARY DISEASE
     Dosage: 18 mcg
     Route: 055
     Dates: start: 2002
  2. COMBIVENT [Suspect]
     Indication: CHRONIC OBSTRUCTIVE PULMONARY DISEASE
     Route: 055
     Dates: start: 2002
  3. VENTOLIN [Concomitant]
     Indication: CHRONIC OBSTRUCTIVE PULMONARY DISEASE
     Route: 055
  4. DILTIAZEM ER [Concomitant]
     Indication: CARDIAC DISORDER
     Dosage: 300 mg
     Route: 048
     Dates: start: 2005
  5. POTASSIUM CHLORIDE [Concomitant]
     Dosage: 10 mEq
     Route: 042
     Dates: start: 2000
  6. SINGULAR [Concomitant]
     Indication: HYPERSENSITIVITY
     Dosage: 10 mg
     Route: 048
     Dates: start: 2008
  7. FISH OIL [Concomitant]
     Indication: MINERAL SUPPLEMENTATION
     Dosage: 2400 mg
     Route: 048
     Dates: start: 2007
  8. ENALAPRIL [Concomitant]
     Indication: CARDIAC DISORDER
     Dosage: 5 mg
     Route: 048
     Dates: start: 1998
  9. SIMVASTATIN [Concomitant]
     Indication: BLOOD CHOLESTEROL INCREASED
     Dosage: 20 mg
     Route: 048
     Dates: start: 2005
  10. ADVAIR [Concomitant]
     Indication: CHRONIC OBSTRUCTIVE PULMONARY DISEASE
     Route: 055
     Dates: start: 2002
  11. COUMADIN [Concomitant]
     Indication: HEART RATE IRREGULAR
     Dosage: 7.5 mg
     Route: 048
     Dates: start: 1998
  12. METFORMIN [Concomitant]
     Indication: TYPE 2 DIABETES MELLITUS
     Dosage: 1000 mg
     Route: 048
     Dates: start: 2004
  13. GABAPENTIN [Concomitant]
     Indication: MUSCLE SPASMS
     Dosage: 600 mg
     Route: 048
     Dates: start: 2010
  14. MULTIVITAMIN [Concomitant]
     Indication: VITAMIN SUPPLEMENTATION
     Route: 048
  15. ASPIRIN [Concomitant]
     Indication: CARDIAC DISORDER
     Dosage: 81 mg
     Route: 048
     Dates: start: 2000
  16. DIGOXIN [Concomitant]
     Indication: CARDIAC DISORDER
     Dosage: 0.25 mg
     Route: 048
     Dates: start: 1998
  17. FUROSEMIDE [Concomitant]
     Indication: CARDIAC DISORDER
     Route: 048
     Dates: start: 1998
  18. GLIPIZIDE [Concomitant]
     Indication: TYPE 2 DIABETES MELLITUS
     Dosage: 5 mg
     Route: 048
     Dates: start: 2008

REACTIONS (2)
  - Dyspnoea [Not Recovered/Not Resolved]
  - Product quality issue [Unknown]
